FAERS Safety Report 18900005 (Version 2)
Quarter: 2021Q1

REPORT INFORMATION
  Report Type: Spontaneous
  Country: HR (occurrence: HR)
  Receive Date: 20210216
  Receipt Date: 20210307
  Transmission Date: 20210420
  Serious: Yes (Death, Hospitalization)
  Sender: FDA-Public Use
  Company Number: HR-SAMSUNG BIOEPIS-SB-2021-03569

PATIENT
  Sex: Male

DRUGS (4)
  1. IMRALDI [Suspect]
     Active Substance: ADALIMUMAB
     Indication: ANKYLOSING SPONDYLITIS
     Route: 058
     Dates: start: 201911
  2. DECORTIN [Concomitant]
     Active Substance: PREDNISONE
     Indication: PRODUCT USED FOR UNKNOWN INDICATION
     Route: 065
  3. AMLODIPINE [Concomitant]
     Active Substance: AMLODIPINE BESYLATE
     Indication: PRODUCT USED FOR UNKNOWN INDICATION
     Route: 065
  4. CO?PERINEVA [Concomitant]
     Indication: PRODUCT USED FOR UNKNOWN INDICATION
     Dosage: 8/2,5
     Route: 065

REACTIONS (7)
  - Acute kidney injury [Fatal]
  - COVID-19 [Fatal]
  - Cardiac arrest [Fatal]
  - Respiratory failure [Fatal]
  - Essential hypertension [Fatal]
  - Enterocolitis bacterial [Fatal]
  - Sepsis [Fatal]
